FAERS Safety Report 7958109-1 (Version None)
Quarter: 2011Q4

REPORT INFORMATION
  Report Type: 
  Country: None (occurrence: None)
  Receive Date: 20111205
  Receipt Date: 20111114
  Transmission Date: 20120403
  Serious: Yes (Hospitalization)
  Sender: FDA-Public Use
  Company Number: US-PERRIGO-11US010353

PATIENT
  Sex: Male

DRUGS (1)
  1. ATACAND [Suspect]
     Indication: PRODUCT USED FOR UNKNOWN INDICATION
     Dosage: UNK, TWICE IN 6 HOURS
     Route: 048
     Dates: start: 20111007, end: 20111007

REACTIONS (2)
  - HYPOAESTHESIA [None]
  - CHEST PAIN [None]
